FAERS Safety Report 6302787-X (Version None)
Quarter: 2009Q3

REPORT INFORMATION
  Report Type: 
  Country: None (occurrence: None)
  Receive Date: 20090810
  Receipt Date: 20090803
  Transmission Date: 20100115
  Serious: Yes (Life-Threatening, Hospitalization)
  Sender: FDA-Public Use
  Company Number: JP-BRISTOL-MYERS SQUIBB COMPANY-14714216

PATIENT
  Age: 72 Year
  Sex: Female

DRUGS (5)
  1. SINEMET [Suspect]
     Indication: PARKINSON'S DISEASE
     Dosage: 10MAR-23MAR09(14D);24MAR-17JUL09(116D);10MAR09(100MG)1/2TAB STARTED;24MAR09 DOSE INCREASED-100MG
     Route: 048
     Dates: start: 20090310, end: 20090717
  2. AMARYL [Concomitant]
  3. CLARITH [Concomitant]
     Indication: COUGH
     Dates: start: 20081210
  4. FOSAMAX [Concomitant]
  5. SYMMETREL [Concomitant]

REACTIONS (1)
  - RESPIRATORY FAILURE [None]
